FAERS Safety Report 14331157 (Version 1)
Quarter: 2017Q4

REPORT INFORMATION
  Report Type: Report from Study
  Country: US (occurrence: US)
  Receive Date: 20171228
  Receipt Date: 20171228
  Transmission Date: 20180321
  Serious: Yes (Death, Other)
  Sender: FDA-Public Use
  Company Number: US-CIPLA LTD.-2017US25427

PATIENT

DRUGS (4)
  1. CARBOPLATIN. [Suspect]
     Active Substance: CARBOPLATIN
     Indication: INTESTINAL ADENOCARCINOMA
     Dosage: UNK
     Route: 065
  2. PACLITAXEL. [Suspect]
     Active Substance: PACLITAXEL
     Indication: INTESTINAL ADENOCARCINOMA
     Dosage: UNK
     Route: 065
  3. CAPECITABINE. [Suspect]
     Active Substance: CAPECITABINE
     Indication: INTESTINAL ADENOCARCINOMA
     Dosage: UNK
     Route: 065
  4. CRLX101 [Suspect]
     Active Substance: INVESTIGATIONAL PRODUCT
     Indication: INTESTINAL ADENOCARCINOMA
     Dosage: 15 MG/M2, ON DAYS 1 AND 15 OF A 28-DAY CYCLE.
     Route: 042

REACTIONS (3)
  - Adenocarcinoma [Unknown]
  - Refractory cancer [Unknown]
  - Death [Fatal]
